FAERS Safety Report 7014765-6 (Version None)
Quarter: 2010Q3

REPORT INFORMATION
  Report Type: 
  Country: None (occurrence: None)
  Receive Date: 20100927
  Receipt Date: 20100913
  Transmission Date: 20110219
  Serious: Yes (Hospitalization, Other)
  Sender: FDA-Public Use
  Company Number: US-ROCHE-729030

PATIENT
  Age: 38 Year
  Sex: Female

DRUGS (4)
  1. VALGANCICLOVIR HCL [Suspect]
     Route: 048
  2. MYCOPHENOLATE MOFETIL [Suspect]
     Route: 065
  3. LEFLUNOMIDE [Suspect]
     Dosage: FOR FIVE DAYS LOADING DOSE.
     Route: 048
  4. LEFLUNOMIDE [Suspect]
     Route: 048

REACTIONS (4)
  - CYTOMEGALOVIRUS VIRAEMIA [None]
  - EPSTEIN-BARR VIRAEMIA [None]
  - FEBRILE NEUTROPENIA [None]
  - PANCYTOPENIA [None]
